FAERS Safety Report 26108302 (Version 1)
Quarter: 2025Q4

REPORT INFORMATION
  Report Type: Spontaneous
  Country: CN (occurrence: CN)
  Receive Date: 20251201
  Receipt Date: 20251201
  Transmission Date: 20260117
  Serious: Yes (Hospitalization)
  Sender: MYLAN
  Company Number: CN-MYLANLABS-2025M1100421

PATIENT
  Age: 55 Year
  Sex: Male

DRUGS (8)
  1. BUDESONIDE\FORMOTEROL FUMARATE [Suspect]
     Active Substance: BUDESONIDE\FORMOTEROL FUMARATE
     Indication: Cough
     Dosage: UNK
  2. BUDESONIDE\FORMOTEROL FUMARATE [Suspect]
     Active Substance: BUDESONIDE\FORMOTEROL FUMARATE
     Indication: Dyspnoea
     Dosage: UNK
     Route: 055
  3. BUDESONIDE\FORMOTEROL FUMARATE [Suspect]
     Active Substance: BUDESONIDE\FORMOTEROL FUMARATE
     Dosage: UNK
     Route: 055
  4. BUDESONIDE\FORMOTEROL FUMARATE [Suspect]
     Active Substance: BUDESONIDE\FORMOTEROL FUMARATE
     Dosage: UNK
  5. DOXOFYLLINE [Suspect]
     Active Substance: DOXOFYLLINE
     Indication: Dyspnoea
     Dosage: UNK
  6. DOXOFYLLINE [Suspect]
     Active Substance: DOXOFYLLINE
     Indication: Cough
     Dosage: UNK
     Route: 048
  7. DOXOFYLLINE [Suspect]
     Active Substance: DOXOFYLLINE
     Dosage: UNK
     Route: 048
  8. DOXOFYLLINE [Suspect]
     Active Substance: DOXOFYLLINE
     Dosage: UNK

REACTIONS (1)
  - Drug ineffective [Unknown]
